FAERS Safety Report 11693335 (Version 1)
Quarter: 2015Q4

REPORT INFORMATION
  Report Type: Spontaneous
  Country: US (occurrence: None)
  Receive Date: 20151102
  Receipt Date: 20151102
  Transmission Date: 20160304
  Serious: Yes (Other)
  Sender: FDA-Public Use
  Company Number: None

PATIENT
  Age: 42 Year
  Sex: Female
  Weight: 107.96 kg

DRUGS (6)
  1. NEURONTIN [Concomitant]
     Active Substance: GABAPENTIN
  2. KLONOPIN [Concomitant]
     Active Substance: CLONAZEPAM
  3. FLAGYL [Concomitant]
     Active Substance: METRONIDAZOLE\METRONIDAZOLE HYDROCHLORIDE
  4. PROBIOTICS [Concomitant]
     Active Substance: PROBIOTICS NOS
  5. CLINDAMYCIN [Suspect]
     Active Substance: CLINDAMYCIN\CLINDAMYCIN PHOSPHATE
     Indication: TONSILLITIS
     Route: 048
     Dates: start: 20151005, end: 20151016
  6. ZOLOFT [Concomitant]
     Active Substance: SERTRALINE HYDROCHLORIDE

REACTIONS (3)
  - Abdominal pain upper [None]
  - Diarrhoea [None]
  - Clostridium difficile infection [None]

NARRATIVE: CASE EVENT DATE: 20151022
